FAERS Safety Report 9261368 (Version 5)
Quarter: 2014Q2

REPORT INFORMATION
  Report Type: Spontaneous
  Country: IT (occurrence: IT)
  Receive Date: 20130429
  Receipt Date: 20140402
  Transmission Date: 20141212
  Serious: Yes (Hospitalization)
  Sender: FDA-Public Use
  Company Number: IT-PFIZER INC-2013129623

PATIENT
  Age: 69 Year
  Sex: Female

DRUGS (12)
  1. SUTENT [Suspect]
     Indication: CLEAR CELL RENAL CELL CARCINOMA
     Dosage: 25 MG, CYCLIC
     Route: 048
     Dates: start: 20090410, end: 201201
  2. CLARITHROMYCIN [Interacting]
     Dosage: 500 MG, 2X/DAY
  3. AMIODARONE [Interacting]
     Dosage: RAPID INFUSION OF 400 MG IN ONE HOUR, FOLLOWED BY 600 MG IN A CONTINUOUS INFUSION,1000 MG, TOTAL)
  4. DOXAZOCIN [Interacting]
     Dosage: 4 MG, 2X/DAY
  5. LERCANIDIPINE [Interacting]
     Dosage: 10 MG, 1X/DAY
  6. WARFARIN SODIUM [Interacting]
  7. CARVEDILOL [Interacting]
     Dosage: 12.5 MG, (1/2 DOSAGE FORM) 2X/DAY
     Dates: start: 20090401
  8. LOSARTAN [Interacting]
     Dosage: 100 MG, DAILY
     Route: 048
  9. HEPARIN LOW MOLECULAR WEIGHT [Concomitant]
     Route: 065
  10. FUROSEMIDE [Concomitant]
     Dosage: 25 MG, (1 TABLET) 1X/DAY
     Route: 065
     Dates: start: 20090401
  11. ALLOPURINOL [Concomitant]
     Dosage: 300 MG, UNK
     Route: 048
  12. PREGABALIN [Concomitant]
     Dosage: 75 MG, UNK
     Route: 048

REACTIONS (15)
  - Atrial fibrillation [Recovering/Resolving]
  - Dyspnoea at rest [Recovered/Resolved]
  - Blood pressure increased [Recovered/Resolved]
  - Acute pulmonary oedema [Recovered/Resolved]
  - Cardiac failure [Recovering/Resolving]
  - Lung disorder [Recovering/Resolving]
  - Renal failure [Recovering/Resolving]
  - Hypertension [Recovered/Resolved]
  - Influenza like illness [Unknown]
  - Asthenia [Recovering/Resolving]
  - Blood creatinine increased [Recovering/Resolving]
  - Blood thyroid stimulating hormone increased [Recovering/Resolving]
  - Blood pressure inadequately controlled [Recovered/Resolved]
  - International normalised ratio fluctuation [Unknown]
  - Drug interaction [Unknown]
